FAERS Safety Report 16376450 (Version 4)
Quarter: 2019Q4

REPORT INFORMATION
  Report Type: Report from Study
  Country: ES (occurrence: ES)
  Receive Date: 20190531
  Receipt Date: 20191111
  Transmission Date: 20200122
  Serious: Yes (Death, Hospitalization, Other)
  Sender: FDA-Public Use
  Company Number: ES-B.I. PHARMACEUTICALS,INC./RIDGEFIELD-2019-BI-024038

PATIENT
  Age: 58 Year
  Sex: Male

DRUGS (1)
  1. PRADAXA [Suspect]
     Active Substance: DABIGATRAN ETEXILATE MESYLATE
     Indication: ATRIAL FIBRILLATION
     Route: 065

REACTIONS (11)
  - Coagulopathy [Fatal]
  - Cardiogenic shock [Fatal]
  - Haemorrhage [Fatal]
  - Cardiac arrest [Fatal]
  - Right ventricular failure [Fatal]
  - Pericardial haemorrhage [Unknown]
  - Post procedural complication [Fatal]
  - Heart disease congenital [Recovered/Resolved]
  - Shock haemorrhagic [Fatal]
  - Haemothorax [Unknown]
  - Vasoplegia syndrome [Fatal]
